FAERS Safety Report 25087754 (Version 2)
Quarter: 2025Q1

REPORT INFORMATION
  Report Type: Spontaneous
  Country: US (occurrence: US)
  Receive Date: 20250318
  Receipt Date: 20250321
  Transmission Date: 20250409
  Serious: No
  Sender: Haleon PLC
  Company Number: US-HALEON-2233288

PATIENT

DRUGS (1)
  1. NICODERM CQ [Suspect]
     Active Substance: NICOTINE
     Indication: Tobacco withdrawal symptoms

REACTIONS (3)
  - Drug ineffective [Unknown]
  - Product packaging difficult to open [Unknown]
  - Product adhesion issue [Unknown]
